FAERS Safety Report 10452894 (Version 2)
Quarter: 2014Q4

REPORT INFORMATION
  Report Type: Spontaneous
  Country: US (occurrence: US)
  Receive Date: 20140915
  Receipt Date: 20141006
  Transmission Date: 20150528
  Serious: No
  Sender: FDA-Public Use
  Company Number: US-SHIRE-US201405847

PATIENT
  Age: 10 Year
  Sex: Male

DRUGS (5)
  1. CLONIDINE. [Concomitant]
     Active Substance: CLONIDINE
     Indication: INSOMNIA
     Dosage: 0.1 MG (ONE TABLET), 1X/DAY:QD (AT NIGHT)
     Route: 048
  2. CIPRODEX                           /00697202/ [Concomitant]
     Indication: EAR TUBE INSERTION
     Dosage: 1 TO 5 GTTS (IN EACH EAR), AS REQ^D
     Route: 001
     Dates: start: 2004
  3. VYVANSE [Suspect]
     Active Substance: LISDEXAMFETAMINE DIMESYLATE
     Indication: ATTENTION DEFICIT/HYPERACTIVITY DISORDER
     Dosage: 50 MG, 1X/DAY:QD
     Route: 048
  4. CLONIDINE. [Concomitant]
     Active Substance: CLONIDINE
     Dosage: 0.2 MG (TWO 0.1 MG TABLETS), 1X/DAY:QD (AT NIGHT)
     Route: 048
  5. ADDERALL [Concomitant]
     Active Substance: AMPHETAMINE ASPARTATE\AMPHETAMINE SULFATE\DEXTROAMPHETAMINE SACCHARATE\DEXTROAMPHETAMINE SULFATE
     Indication: ATTENTION DEFICIT/HYPERACTIVITY DISORDER
     Dosage: 10 MG, 1X/DAY:QD
     Route: 048

REACTIONS (5)
  - Heart rate irregular [Unknown]
  - Drug ineffective [Not Recovered/Not Resolved]
  - Appetite disorder [Unknown]
  - Victim of crime [Recovered/Resolved]
  - Product quality issue [Unknown]

NARRATIVE: CASE EVENT DATE: 20140907
